FAERS Safety Report 18018441 (Version 1)
Quarter: 2020Q3

REPORT INFORMATION
  Report Type: Report from Study
  Country: FR (occurrence: FR)
  Receive Date: 20200714
  Receipt Date: 20200714
  Transmission Date: 20201103
  Serious: Yes (Death)
  Sender: FDA-Public Use
  Company Number: FR-TAKEDA-2020TUS030323

PATIENT
  Age: 72 Year
  Sex: Male

DRUGS (3)
  1. CAELYX [Suspect]
     Active Substance: DOXORUBICIN HYDROCHLORIDE
     Indication: PLASMA CELL MYELOMA
     Dosage: 30 MILLIGRAM/SQ. METER, 1/WEEK
     Route: 065
     Dates: end: 20180702
  2. DEXAMETHASONE. [Suspect]
     Active Substance: DEXAMETHASONE
     Indication: PLASMA CELL MYELOMA
     Dosage: 20 MILLIGRAM, 2/WEEK
     Route: 065
     Dates: end: 20180702
  3. BORTEZOMIB. [Suspect]
     Active Substance: BORTEZOMIB
     Indication: PLASMA CELL MYELOMA
     Dosage: 2.5 MILLIGRAM, 2/WEEK
     Route: 065
     Dates: end: 20180702

REACTIONS (3)
  - Product use issue [Unknown]
  - General physical health deterioration [Fatal]
  - Off label use [Unknown]
